FAERS Safety Report 5937293-5 (Version None)
Quarter: 2008Q4

REPORT INFORMATION
  Report Type: 
  Country: None (occurrence: None)
  Receive Date: 20081031
  Receipt Date: 20081023
  Transmission Date: 20090506
  Serious: Yes (Other)
  Sender: FDA-Public Use
  Company Number: US-AMGEN-QUU315194

PATIENT
  Sex: Female

DRUGS (2)
  1. ENBREL [Suspect]
     Indication: RHEUMATOID ARTHRITIS
     Route: 058
     Dates: start: 20050501
  2. METHOTREXATE [Concomitant]

REACTIONS (6)
  - ACCIDENTAL NEEDLE STICK [None]
  - BILIARY DILATATION [None]
  - HEPATOMEGALY [None]
  - HERNIA [None]
  - LIVER FUNCTION TEST ABNORMAL [None]
  - SPLENIC CYST [None]
